FAERS Safety Report 12643767 (Version 1)
Quarter: 2016Q3

REPORT INFORMATION
  Report Type: Report from Study
  Country: RO (occurrence: RO)
  Receive Date: 20160811
  Receipt Date: 20160811
  Transmission Date: 20161109
  Serious: Yes (Other)
  Sender: FDA-Public Use
  Company Number: RO-KADMON PHARMACEUTICALS, LLC-KAD201608-002987

PATIENT
  Age: 72 Year
  Sex: Female

DRUGS (7)
  1. RIBAVIRIN. [Suspect]
     Active Substance: RIBAVIRIN
     Indication: HEPATITIS C
     Dosage: FILM COATED TABLET
     Route: 048
     Dates: start: 20160514, end: 20160805
  2. VIEKIRAX [Suspect]
     Active Substance: OMBITASVIR\PARITAPREVIR\RITONAVIR
     Indication: HEPATITIS C
     Dosage: FILM COATED TABLET
     Route: 048
     Dates: start: 20160514, end: 20160805
  3. EXVIERA [Suspect]
     Active Substance: DASABUVIR
     Indication: HEPATITIS C
     Dosage: FILM COATED TABLET
     Route: 048
     Dates: start: 20160514, end: 20160805
  4. CONCOR 5 MG [Concomitant]
     Indication: CARDIAC DISORDER
     Route: 048
     Dates: start: 2011
  5. EXVIERA [Suspect]
     Active Substance: DASABUVIR
     Indication: HEPATIC CIRRHOSIS
  6. RIBAVIRIN. [Suspect]
     Active Substance: RIBAVIRIN
     Indication: HEPATIC CIRRHOSIS
  7. VIEKIRAX [Suspect]
     Active Substance: OMBITASVIR\PARITAPREVIR\RITONAVIR
     Indication: HEPATIC CIRRHOSIS

REACTIONS (4)
  - Malaise [Unknown]
  - Decreased appetite [Unknown]
  - Nausea [Recovered/Resolved]
  - Dizziness [Unknown]

NARRATIVE: CASE EVENT DATE: 20160801
